FAERS Safety Report 20592231 (Version 1)
Quarter: 2022Q1

REPORT INFORMATION
  Report Type: Spontaneous
  Country: US (occurrence: None)
  Receive Date: 20220314
  Receipt Date: 20220314
  Transmission Date: 20220423
  Serious: No
  Sender: FDA-Public Use
  Company Number: US-ROCHE-2848268

PATIENT
  Age: 55 Year
  Sex: Female
  Weight: 68.100 kg

DRUGS (18)
  1. XOLAIR [Suspect]
     Active Substance: OMALIZUMAB
     Indication: Idiopathic urticaria
     Dosage: 300 MG EVERY 4 WEEKS SUBCUTANEOUSLY
     Route: 058
     Dates: start: 201611
  2. XOLAIR [Suspect]
     Active Substance: OMALIZUMAB
  3. XOLAIR [Suspect]
     Active Substance: OMALIZUMAB
  4. XOLAIR [Suspect]
     Active Substance: OMALIZUMAB
     Indication: Urticaria
  5. XOLAIR [Suspect]
     Active Substance: OMALIZUMAB
  6. XOLAIR [Suspect]
     Active Substance: OMALIZUMAB
  7. VITAMIN C [Concomitant]
     Active Substance: ASCORBIC ACID
     Route: 048
  8. CALCIUM [Concomitant]
     Active Substance: CALCIUM
     Route: 048
  9. VITAMIN D3 [Concomitant]
     Active Substance: CHOLECALCIFEROL
     Route: 048
  10. HYDROXYZINE [Concomitant]
     Active Substance: HYDROXYZINE HYDROCHLORIDE
     Indication: Urticaria
     Route: 048
  11. ZYRTEC (UNITED STATES) [Concomitant]
     Indication: Hypersensitivity
     Route: 048
  12. ZYRTEC (UNITED STATES) [Concomitant]
     Indication: Urticaria
  13. BENZOIC ACID [Concomitant]
     Active Substance: BENZOIC ACID
     Indication: Cough
     Route: 048
  14. BENZOIC ACID [Concomitant]
     Active Substance: BENZOIC ACID
     Indication: Hypersensitivity
  15. SYMBICORT [Concomitant]
     Active Substance: BUDESONIDE\FORMOTEROL FUMARATE DIHYDRATE
     Indication: Asthma
     Route: 055
  16. ASMANEX [Concomitant]
     Active Substance: MOMETASONE FUROATE
     Route: 055
  17. PROAIR HFA [Concomitant]
     Active Substance: ALBUTEROL SULFATE
  18. BENADRYL [Concomitant]
     Active Substance: DIPHENHYDRAMINE HYDROCHLORIDE
     Indication: Urticaria
     Route: 048

REACTIONS (14)
  - Asthma [Not Recovered/Not Resolved]
  - Pain [Recovered/Resolved]
  - Fall [Unknown]
  - Urticaria [Not Recovered/Not Resolved]
  - Diplopia [Unknown]
  - Wrist fracture [Not Recovered/Not Resolved]
  - Heart rate decreased [Unknown]
  - Complex regional pain syndrome [Not Recovered/Not Resolved]
  - Upper limb fracture [Not Recovered/Not Resolved]
  - Chest pain [Unknown]
  - Pain in extremity [Recovering/Resolving]
  - Painful respiration [Unknown]
  - Muscle spasms [Unknown]
  - Head injury [Not Recovered/Not Resolved]

NARRATIVE: CASE EVENT DATE: 20210524
